FAERS Safety Report 22321249 (Version 2)
Quarter: 2023Q2

REPORT INFORMATION
  Report Type: Report from Study
  Country: CA (occurrence: CA)
  Receive Date: 20230515
  Receipt Date: 20230516
  Transmission Date: 20230722
  Serious: Yes (Other)
  Sender: FDA-Public Use
  Company Number: CA-HLS-202300396

PATIENT
  Age: 61 Year
  Sex: Female

DRUGS (5)
  1. CLOZARIL [Suspect]
     Active Substance: CLOZAPINE
     Indication: Product used for unknown indication
     Route: 048
     Dates: start: 20131018, end: 20230126
  2. CLOZARIL [Suspect]
     Active Substance: CLOZAPINE
     Indication: Product used for unknown indication
     Dosage: STARTED ON CLOZAPINE 10 DAYS AGO AND SLOWLY TITRATED UP TO 100 MG OVER 10 DAYS (UP TO 125MG PO QHS,
     Route: 048
     Dates: start: 20230207
  3. ABILIFY MAINTENA [Suspect]
     Active Substance: ARIPIPRAZOLE
     Indication: Product used for unknown indication
     Dosage: 400MG Q3 WEEKS
     Route: 065
  4. EPIVAL [Suspect]
     Active Substance: DIVALPROEX SODIUM
     Indication: Product used for unknown indication
     Dosage: 1250MG DAILY
     Route: 065
  5. OLANZAPINE [Suspect]
     Active Substance: OLANZAPINE
     Indication: Product used for unknown indication
     Dosage: 10MG DAILY
     Route: 065

REACTIONS (7)
  - Agitation [Unknown]
  - Blood pressure increased [Recovered/Resolved]
  - Delusion [Not Recovered/Not Resolved]
  - Sedation [Unknown]
  - Pyrexia [Recovered/Resolved]
  - Tachycardia [Recovering/Resolving]
  - Myocarditis [Unknown]

NARRATIVE: CASE EVENT DATE: 20230221
